FAERS Safety Report 4988296-9 (Version None)
Quarter: 2006Q2

REPORT INFORMATION
  Report Type: 
  Country: None (occurrence: None)
  Receive Date: 20060425
  Receipt Date: 20060412
  Transmission Date: 20061013
  Serious: Yes (Life-Threatening, Hospitalization, Disabling, Other)
  Sender: FDA-Public Use
  Company Number: 2006032578

PATIENT
  Sex: Female
  Weight: 38 kg

DRUGS (9)
  1. SILDENAFIL CITRATE [Suspect]
     Indication: PULMONARY HYPERTENSION
     Dosage: 25 MG (12.5 MG, 2 IN 1 D), ORAL
     Route: 048
     Dates: start: 20040827
  2. LASIX [Concomitant]
  3. LASIX [Concomitant]
  4. ALPHAPRESS (HYDRALAZINE HYDROCHLORIDE) [Concomitant]
  5. LANOXIN [Concomitant]
  6. PLAVIX [Concomitant]
  7. PREDNISONE TAB [Concomitant]
  8. ROCALTROL [Concomitant]
  9. LEVOTHYROXINE SODIUM [Concomitant]

REACTIONS (15)
  - ANAEMIA [None]
  - CARDIAC FAILURE CONGESTIVE [None]
  - COMPRESSION FRACTURE [None]
  - CYANOSIS [None]
  - GASTRITIS [None]
  - GASTROINTESTINAL HAEMORRHAGE [None]
  - LUNG INFECTION [None]
  - MELAENA [None]
  - OEDEMA [None]
  - PLEURAL EFFUSION [None]
  - PNEUMONIA [None]
  - PULMONARY ARTERIAL PRESSURE DECREASED [None]
  - PULMONARY OEDEMA [None]
  - RIB FRACTURE [None]
  - THORACIC VERTEBRAL FRACTURE [None]
